FAERS Safety Report 6972666-3 (Version None)
Quarter: 2010Q3

REPORT INFORMATION
  Report Type: 
  Country: None (occurrence: None)
  Receive Date: 20100909
  Receipt Date: 20100831
  Transmission Date: 20110219
  Serious: Yes (Disabling)
  Sender: FDA-Public Use
  Company Number: JP-PFIZER INC-2010109220

PATIENT
  Age: 24 Year
  Sex: Female

DRUGS (2)
  1. ZOLOFT [Suspect]
     Indication: DYSPHORIA
     Dosage: 25MG DAILY
     Route: 048
  2. ZOLOFT [Suspect]
     Dosage: 50MG DAILY
     Route: 048

REACTIONS (1)
  - DRUG ERUPTION [None]
